FAERS Safety Report 6786656-7 (Version None)
Quarter: 2010Q2

REPORT INFORMATION
  Report Type: 
  Country: None (occurrence: None)
  Receive Date: 20100623
  Receipt Date: 20100609
  Transmission Date: 20101027
  Serious: Yes (Other)
  Sender: FDA-Public Use
  Company Number: NL-ELI_LILLY_AND_COMPANY-NL201005004105

PATIENT
  Sex: Male

DRUGS (5)
  1. ZYPREXA [Suspect]
     Indication: SCHIZOPHRENIA
     Dosage: 10 MG, DAILY (1/D)
     Route: 048
     Dates: start: 20100330, end: 20100401
  2. BIPERIDEN HYDROCHLORIDE TAB [Concomitant]
     Indication: EXTRAPYRAMIDAL DISORDER
     Dosage: 2 MG, 3/D
  3. LORAZEPAM [Concomitant]
     Dosage: 2.5 MG, DAILY (1/D)
     Route: 048
  4. LORAZEPAM [Concomitant]
     Dosage: 1 MG, 3/D
     Route: 048
  5. ZUCLOPENTHIXOL ACETATE [Concomitant]
     Dosage: 50 MG, UNK
     Route: 030

REACTIONS (2)
  - BRADYCARDIA [None]
  - HYPOTENSION [None]
